FAERS Safety Report 5102898-0 (Version None)
Quarter: 2006Q3

REPORT INFORMATION
  Report Type: 
  Country: None (occurrence: None)
  Receive Date: 20060908
  Receipt Date: 20060828
  Transmission Date: 20061208
  Serious: Yes (Other)
  Sender: FDA-Public Use
  Company Number: US-2006-018730

PATIENT
  Sex: Male

DRUGS (1)
  1. MAGNEVIST [Suspect]
     Indication: ANGIOGRAM
     Dosage: 1 DOSE, INTRAVENOUS
     Route: 042
     Dates: start: 20050907, end: 20050907

REACTIONS (5)
  - CONDITION AGGRAVATED [None]
  - DIALYSIS [None]
  - MUSCULOSKELETAL STIFFNESS [None]
  - NEPHROGENIC FIBROSING DERMOPATHY [None]
  - RENAL FAILURE CHRONIC [None]
